FAERS Safety Report 6067243-5 (Version None)
Quarter: 2009Q1

REPORT INFORMATION
  Report Type: 
  Country: None (occurrence: None)
  Receive Date: 20090203
  Receipt Date: 20090127
  Transmission Date: 20090719
  Serious: No
  Sender: FDA-Public Use
  Company Number: CHPA2009US00803

PATIENT
  Age: 84 Year
  Sex: Male

DRUGS (7)
  1. MAALOX ANTIACID/ANTIGAS MAX STR MULTI SYMPTOM (NCH) (MAGNESIUM HYDROXI [Suspect]
     Indication: DYSPEPSIA
     Dosage: 3 TSP, BID, ORAL
     Route: 048
     Dates: start: 20081201
  2. MAALOX ANTIACID/ANTIGAS MAX STR MULTI SYMPTOM (NCH) (MAGNESIUM HYDROXI [Suspect]
     Indication: FLATULENCE
     Dosage: 3 TSP, BID, ORAL
     Route: 048
     Dates: start: 20081201
  3. PRAVASTATIN [Concomitant]
  4. PREVACID [Concomitant]
  5. ASPIRIN [Concomitant]
  6. FISH OIL (FISH OIL) [Concomitant]
  7. CALCIUM (CALCIUM) [Concomitant]

REACTIONS (2)
  - INTENTIONAL DRUG MISUSE [None]
  - MUSCULAR WEAKNESS [None]
